FAERS Safety Report 8887465 (Version 1)
Quarter: 2012Q4

REPORT INFORMATION
  Report Type: Spontaneous
  Country: US (occurrence: None)
  Receive Date: 20121101
  Receipt Date: 20121101
  Transmission Date: 20130627
  Serious: No
  Sender: FDA-Public Use
  Company Number: None

PATIENT
  Sex: Female
  Weight: 104.33 kg

DRUGS (1)
  1. SYNTHROID [Suspect]
     Indication: THYROID HORMONE REPLACEMENT
     Route: 048
     Dates: start: 1998

REACTIONS (5)
  - Eye inflammation [None]
  - Inflammation [None]
  - Cough [None]
  - Choking [None]
  - Hypersensitivity [None]
